FAERS Safety Report 6193114-X (Version None)
Quarter: 2009Q2

REPORT INFORMATION
  Report Type: 
  Country: None (occurrence: None)
  Receive Date: 20090518
  Receipt Date: 20090514
  Transmission Date: 20091009
  Serious: Yes (Other)
  Sender: FDA-Public Use
  Company Number: A0784284A

PATIENT
  Age: 23 Year
  Sex: Male

DRUGS (1)
  1. ALLI [Suspect]
     Indication: WEIGHT LOSS DIET
     Route: 048
     Dates: start: 20090401, end: 20090501

REACTIONS (2)
  - DEPRESSION [None]
  - SUICIDAL IDEATION [None]
